FAERS Safety Report 8061163-2 (Version None)
Quarter: 2012Q1

REPORT INFORMATION
  Report Type: 
  Country: None (occurrence: None)
  Receive Date: 20120120
  Receipt Date: 20110627
  Transmission Date: 20120608
  Serious: No
  Sender: FDA-Public Use
  Company Number: US-ALLERGAN-1108678US

PATIENT
  Age: 55 Year
  Sex: Female

DRUGS (2)
  1. RESTASIS [Suspect]
     Indication: EYE OPERATION
     Dosage: 1 GTT, BID
     Route: 047
     Dates: start: 20110606
  2. REFRESH PLUS [Concomitant]
     Indication: EYE OPERATION

REACTIONS (1)
  - DIARRHOEA [None]
